FAERS Safety Report 23092198 (Version 1)
Quarter: 2023Q4

REPORT INFORMATION
  Report Type: Spontaneous
  Country: US (occurrence: US)
  Receive Date: 20231021
  Receipt Date: 20231021
  Transmission Date: 20240109
  Serious: Yes (Death)
  Sender: FDA-Public Use
  Company Number: US-002147023-NVSC2023US226297

PATIENT
  Age: 90 Year
  Sex: Female

DRUGS (1)
  1. LEQVIO [Suspect]
     Active Substance: INCLISIRAN SODIUM
     Indication: Hyperlipidaemia
     Dosage: 284 MG, EVERY 6 MONTHS (OTHER) (284 MG INCLISIRAN 1.5ML SOLUTION)
     Route: 058
     Dates: start: 20230327, end: 20230327

REACTIONS (1)
  - Death [Fatal]

NARRATIVE: CASE EVENT DATE: 20231001
